FAERS Safety Report 7625752-9 (Version None)
Quarter: 2011Q3

REPORT INFORMATION
  Report Type: 
  Country: None (occurrence: None)
  Receive Date: 20110721
  Receipt Date: 20110719
  Transmission Date: 20111222
  Serious: No
  Sender: FDA-Public Use
  Company Number: US-B.I. PHARMACEUTICALS,INC./RIDGEFIELD-2011-BP-18033BP

PATIENT
  Sex: Male

DRUGS (12)
  1. PRADAXA [Suspect]
     Indication: ATRIAL FIBRILLATION
     Dosage: 300 MG
     Route: 048
     Dates: start: 20110711
  2. KLONOPIN [Concomitant]
     Indication: INSOMNIA
     Dosage: 0.5 MG
     Route: 048
  3. FISH OIL [Concomitant]
     Indication: PROPHYLAXIS
     Route: 048
  4. HYDRALAZINE HCL [Concomitant]
     Indication: HYPERTENSION
     Dosage: 125 MG
     Route: 048
  5. METOPROLOL TARTRATE [Concomitant]
     Indication: HYPERTENSION
     Dosage: 75 MG
     Route: 048
  6. CELEBREX [Concomitant]
     Indication: ARTHRITIS
     Dosage: 200 MG
     Route: 048
  7. TRANDOLAPRIL [Concomitant]
     Indication: HYPERTENSION
     Dosage: 4 MG
     Route: 048
  8. NAPROXEN (ALEVE) [Concomitant]
     Indication: ARTHRITIS
     Route: 048
  9. IBUPROFEN AND DIPHENHYDRAMINE [Concomitant]
     Indication: INSOMNIA
     Dosage: 200 MG
     Route: 048
  10. HYDROCHLOROTHIAZIDE [Concomitant]
     Indication: HYPERTENSION
     Dosage: 12.5 MG
     Route: 048
  11. ASPIRIN [Concomitant]
     Indication: PROPHYLAXIS
     Dosage: 325 MG
     Route: 048
  12. VYTORIN [Concomitant]
     Indication: BLOOD CHOLESTEROL INCREASED
     Route: 048

REACTIONS (1)
  - SOMNOLENCE [None]
